FAERS Safety Report 9408668 (Version 1)
Quarter: 2013Q3

REPORT INFORMATION
  Report Type: Spontaneous
  Country: US (occurrence: None)
  Receive Date: 20130716
  Receipt Date: 20130716
  Transmission Date: 20140515
  Serious: Yes (Hospitalization)
  Sender: FDA-Public Use
  Company Number: 1715952

PATIENT
  Age: 67 Year
  Sex: Female

DRUGS (3)
  1. LIDOCAINE HCL [Suspect]
     Indication: OSTEOARTHRITIS
     Route: 013
     Dates: start: 20130416
  2. KENALOG [Suspect]
     Indication: OSTEOARTHRITIS
     Dosage: EACH KNEE X1
     Route: 013
     Dates: start: 20130416
  3. (CHEMOTHERAPEUTICS) [Concomitant]

REACTIONS (1)
  - Septic arthritis staphylococcal [None]
